FAERS Safety Report 15218035 (Version 1)
Quarter: 2018Q3

REPORT INFORMATION
  Report Type: Spontaneous
  Country: US (occurrence: US)
  Receive Date: 20180730
  Receipt Date: 20180730
  Transmission Date: 20181010
  Serious: Yes (Hospitalization)
  Sender: FDA-Public Use
  Company Number: US-AMGEN-USASP2018101149

PATIENT
  Age: 63 Year
  Sex: Female

DRUGS (3)
  1. PROLIA [Suspect]
     Active Substance: DENOSUMAB
     Indication: PRODUCT USED FOR UNKNOWN INDICATION
     Dosage: UNK
     Route: 065
     Dates: start: 20180711
  2. BENLYSTA [Concomitant]
     Active Substance: BELIMUMAB
     Indication: UTERINE CANCER
     Dosage: UNK
     Dates: start: 20180720
  3. COUMADIN [Concomitant]
     Active Substance: WARFARIN SODIUM

REACTIONS (4)
  - Nausea [Unknown]
  - Fatigue [Unknown]
  - Migraine [Unknown]
  - Pain in jaw [Unknown]

NARRATIVE: CASE EVENT DATE: 20180711
